FAERS Safety Report 4402129-0 (Version None)
Quarter: 2004Q3

REPORT INFORMATION
  Report Type: 
  Country: None (occurrence: None)
  Receive Date: 20040719
  Receipt Date: 20040719
  Transmission Date: 20050211
  Serious: Yes (Life-Threatening, Hospitalization)
  Sender: FDA-Public Use
  Company Number: None

PATIENT
  Age: 50 Year
  Sex: Male

DRUGS (1)
  1. METHOTREXATE [Suspect]
     Indication: GLIOBLASTOMA MULTIFORME
     Dosage: 129 MG/M2 X 1 CENTRAL VENOUS ACCESS
     Dates: start: 20040629

REACTIONS (7)
  - BLOOD CULTURE POSITIVE [None]
  - BODY TEMPERATURE INCREASED [None]
  - CULTURE URINE POSITIVE [None]
  - ESCHERICHIA INFECTION [None]
  - PANCYTOPENIA [None]
  - PNEUMONIA [None]
  - RESPIRATORY FAILURE [None]
